FAERS Safety Report 6981789-4 (Version None)
Quarter: 2010Q3

REPORT INFORMATION
  Report Type: 
  Country: None (occurrence: None)
  Receive Date: 20100914
  Receipt Date: 20091116
  Transmission Date: 20110219
  Serious: No
  Sender: FDA-Public Use
  Company Number: US-PFIZER INC-2009268218

PATIENT
  Sex: Female
  Weight: 78.9 kg

DRUGS (6)
  1. LYRICA [Suspect]
     Indication: FIBROMYALGIA
     Dosage: 50 MG, 2X/DAY
     Dates: end: 20090901
  2. PREDNISONE [Concomitant]
     Dosage: UNK
  3. TRAZODONE [Concomitant]
     Dosage: AT NIGHT
  4. LEXAPRO [Concomitant]
     Dosage: UNK
  5. CIPRO [Concomitant]
     Dosage: UNK
  6. WELLBUTRIN [Concomitant]
     Dosage: UNK

REACTIONS (12)
  - ABDOMINAL DISCOMFORT [None]
  - DISTURBANCE IN ATTENTION [None]
  - DIZZINESS [None]
  - DRUG INEFFECTIVE [None]
  - DRY MOUTH [None]
  - FEELING ABNORMAL [None]
  - GAIT DISTURBANCE [None]
  - HYPERHIDROSIS [None]
  - INSOMNIA [None]
  - MENTAL IMPAIRMENT [None]
  - VISION BLURRED [None]
  - WEIGHT INCREASED [None]
